FAERS Safety Report 4698599-3 (Version None)
Quarter: 2005Q2

REPORT INFORMATION
  Report Type: 
  Country: None (occurrence: None)
  Receive Date: 20050623
  Receipt Date: 20040622
  Transmission Date: 20051028
  Serious: Yes (Hospitalization, Disabling)
  Sender: FDA-Public Use
  Company Number: FI-ABBOTT-04P-150-0264623-00

PATIENT
  Age: 39 Year
  Sex: Male

DRUGS (2)
  1. KALETRA [Suspect]
     Indication: HIV INFECTION
     Route: 048
     Dates: start: 20030109, end: 20040607
  2. SERETIDE DISCUS [Interacting]
     Indication: ASTHMA
     Dosage: 50/500
     Dates: start: 20020101

REACTIONS (8)
  - ADRENAL SUPPRESSION [None]
  - BLOOD GLUCOSE INCREASED [None]
  - CUSHINGOID [None]
  - DRUG INTERACTION [None]
  - GENERAL PHYSICAL HEALTH DETERIORATION [None]
  - GLYCOSYLATED HAEMOGLOBIN INCREASED [None]
  - SPINAL COMPRESSION FRACTURE [None]
  - UNEVALUABLE EVENT [None]
